FAERS Safety Report 4921602-X (Version None)
Quarter: 2006Q1

REPORT INFORMATION
  Report Type: 
  Country: None (occurrence: None)
  Receive Date: 20060224
  Receipt Date: 20060203
  Transmission Date: 20060701
  Serious: Yes (Death)
  Sender: FDA-Public Use
  Company Number: PHBS2006RU01898

PATIENT
  Sex: Female
  Weight: 50 kg

DRUGS (2)
  1. SANDIMMUNE [Suspect]
     Indication: NEPHROTIC SYNDROME
     Dosage: 200 MG/D
     Route: 048
  2. PREDNISOLONE [Concomitant]
     Dosage: 20 MG/D
     Route: 048

REACTIONS (4)
  - ACUTE TONSILLITIS [None]
  - DRUG INEFFECTIVE [None]
  - LEUKOPENIA [None]
  - TOXIC SHOCK SYNDROME [None]
